FAERS Safety Report 11647540 (Version 1)
Quarter: 2015Q4

REPORT INFORMATION
  Report Type: Spontaneous
  Country: US (occurrence: None)
  Receive Date: 20151019
  Receipt Date: 20151019
  Transmission Date: 20160304
  Serious: Yes (Other)
  Sender: FDA-Public Use
  Company Number: 2015-7867

PATIENT
  Age: 25 Year
  Sex: Female

DRUGS (8)
  1. SYMPATHETIC BLOCKS [Suspect]
     Active Substance: UNSPECIFIED INGREDIENT
     Indication: COMPLEX REGIONAL PAIN SYNDROME
  2. PENTOXIPHYLLINE [Suspect]
     Active Substance: PENTOXIFYLLINE
     Indication: COMPLEX REGIONAL PAIN SYNDROME
  3. GABAPENTIN (GABAPENTIN) [Suspect]
     Active Substance: GABAPENTIN
     Indication: COMPLEX REGIONAL PAIN SYNDROME
  4. BOTULINUM TOXIN [Suspect]
     Active Substance: BOTULINUM TOXIN TYPE A
     Indication: PRODUCT USE ISSUE
     Dosage: 1 IN 1 CYCLE
  5. OPIOIDS [Suspect]
     Active Substance: UNSPECIFIED INGREDIENT
     Indication: COMPLEX REGIONAL PAIN SYNDROME
  6. DAPSONE (DAPSONE) (DAPSONE) [Suspect]
     Active Substance: DAPSONE
     Indication: COMPLEX REGIONAL PAIN SYNDROME
  7. PREDNISONE (PREDNISONE) [Suspect]
     Active Substance: PREDNISONE
     Indication: COMPLEX REGIONAL PAIN SYNDROME
  8. BOTULINUM TOXIN [Suspect]
     Active Substance: BOTULINUM TOXIN TYPE A
     Indication: COMPLEX REGIONAL PAIN SYNDROME
     Dosage: 1 IN 1 CYCLE

REACTIONS (4)
  - Paraplegia [None]
  - Post inflammatory pigmentation change [None]
  - Spinal cord abscess [None]
  - Medical device complication [None]
